FAERS Safety Report 15983114 (Version 1)
Quarter: 2019Q1

REPORT INFORMATION
  Report Type: Spontaneous
  Country: US (occurrence: US)
  Receive Date: 20190125
  Receipt Date: 20190125
  Transmission Date: 20190418
  Serious: Yes (Disabling, Other)
  Sender: FDA-Public Use
  Company Number: None

PATIENT
  Age: 45 Year
  Sex: Female
  Weight: 40.82 kg

DRUGS (11)
  1. VENTOLIN [Concomitant]
     Active Substance: ALBUTEROL SULFATE
  2. LORAZEPAM. [Concomitant]
     Active Substance: LORAZEPAM
  3. DOXYCYCLINE HYCLATE 100MG [Suspect]
     Active Substance: DOXYCYCLINE HYCLATE
     Indication: VULVITIS
     Dosage: ?          QUANTITY:1 PILL 2X DAY;?
     Route: 048
     Dates: start: 20190103, end: 20190103
  4. SYMBICORT [Concomitant]
     Active Substance: BUDESONIDE\FORMOTEROL FUMARATE DIHYDRATE
  5. OXYCODONE [Concomitant]
     Active Substance: OXYCODONE
  6. VITAMIN C [Concomitant]
     Active Substance: ASCORBIC ACID
  7. GLUTAGENICS METAGENICS ULTRA [Concomitant]
  8. BACLOFEN. [Concomitant]
     Active Substance: BACLOFEN
  9. DILTIAZEM. [Concomitant]
     Active Substance: DILTIAZEM
  10. VITAMIN D3 [Concomitant]
     Active Substance: CHOLECALCIFEROL
  11. VIT B [Concomitant]
     Active Substance: VITAMIN B

REACTIONS (15)
  - Malaise [None]
  - Mucous stools [None]
  - Skin exfoliation [None]
  - Pyrexia [None]
  - Nausea [None]
  - Back pain [None]
  - Swelling face [None]
  - Skin burning sensation [None]
  - Arthralgia [None]
  - Headache [None]
  - Erythema [None]
  - Abdominal discomfort [None]
  - Drug ineffective [None]
  - Bone pain [None]
  - Lip blister [None]

NARRATIVE: CASE EVENT DATE: 20190103
